FAERS Safety Report 4530927-1 (Version None)
Quarter: 2004Q4

REPORT INFORMATION
  Report Type: 
  Country: None (occurrence: None)
  Receive Date: 20041213
  Receipt Date: 20041129
  Transmission Date: 20050328
  Serious: Yes (Hospitalization)
  Sender: FDA-Public Use
  Company Number: 200410394BBE

PATIENT
  Age: 54 Year
  Sex: Male

DRUGS (3)
  1. GAMUNEX [Suspect]
     Indication: CHRONIC INFLAMMATORY DEMYELINATING POLYRADICULONEUROPATHY
     Dosage: 40 G, Q2WK, INTRAVENOUS
     Route: 042
     Dates: start: 20041106
  2. DETROL [Concomitant]
  3. UROXATRAL [Concomitant]

REACTIONS (2)
  - COLITIS ISCHAEMIC [None]
  - DRUG EFFECT DECREASED [None]
